FAERS Safety Report 12932218 (Version 1)
Quarter: 2016Q4

REPORT INFORMATION
  Report Type: Spontaneous
  Country: US (occurrence: US)
  Receive Date: 20161111
  Receipt Date: 20161111
  Transmission Date: 20170207
  Serious: Yes (Other)
  Sender: FDA-Public Use
  Company Number: US-AMGEN-USASP2016158046

PATIENT
  Age: 50 Year
  Sex: Male

DRUGS (2)
  1. KYPROLIS [Suspect]
     Active Substance: CARFILZOMIB
     Indication: PRODUCT USED FOR UNKNOWN INDICATION
     Dosage: UNK
     Route: 065
  2. POMALYST [Suspect]
     Active Substance: POMALIDOMIDE
     Indication: PLASMA CELL MYELOMA
     Dosage: 2 MG, DAILY FOR 21 OF 21 DAYS
     Route: 048
     Dates: start: 20160817

REACTIONS (3)
  - Weight decreased [Not Recovered/Not Resolved]
  - Decreased appetite [Not Recovered/Not Resolved]
  - Ageusia [Not Recovered/Not Resolved]

NARRATIVE: CASE EVENT DATE: 2016
